FAERS Safety Report 9693515 (Version 2)
Quarter: 2014Q4

REPORT INFORMATION
  Report Type: Spontaneous
  Country: BR (occurrence: BR)
  Receive Date: 20131118
  Receipt Date: 20141104
  Transmission Date: 20150529
  Serious: Yes (Hospitalization)
  Sender: FDA-Public Use
  Company Number: BR-BRISTOL-MYERS SQUIBB COMPANY-19803592

PATIENT
  Age: 52 Year
  Sex: Female

DRUGS (8)
  1. INSULIN REGULAR [Concomitant]
     Active Substance: INSULIN NOS
     Dosage: AT NIGHT
  2. MONOCORDIL [Concomitant]
     Active Substance: ISOSORBIDE MONONITRATE
  3. CARVEDILOL. [Concomitant]
     Active Substance: CARVEDILOL
  4. AAS [Concomitant]
     Active Substance: ASPIRIN
  5. RIVOTRIL [Concomitant]
     Active Substance: CLONAZEPAM
  6. GLIFAGE XR [Suspect]
     Active Substance: METFORMIN HYDROCHLORIDE
     Indication: DIABETES MELLITUS
     Dosage: TABLET
     Dates: start: 20130921, end: 20131111
  7. INSULINE NPH [Concomitant]
     Dosage: IN MRNG
  8. TRYPTANOL [Concomitant]
     Active Substance: AMITRIPTYLINE

REACTIONS (3)
  - Cold sweat [Recovered/Resolved]
  - Vertigo [Recovered/Resolved]
  - Heart rate increased [Recovered/Resolved]

NARRATIVE: CASE EVENT DATE: 20130921
